FAERS Safety Report 5065811-0 (Version None)
Quarter: 2006Q3

REPORT INFORMATION
  Report Type: 
  Country: None (occurrence: None)
  Receive Date: 20060731
  Receipt Date: 20060721
  Transmission Date: 20061208
  Serious: Yes (Other)
  Sender: FDA-Public Use
  Company Number: PHEH2006US09452

PATIENT
  Age: 61 Year
  Sex: Male

DRUGS (8)
  1. ZOMETA [Suspect]
     Indication: MULTIPLE MYELOMA
     Dosage: 4MG QMO
     Route: 042
  2. REVLIMID [Concomitant]
  3. THALIDOMIDE [Concomitant]
  4. DECADRON                                /CAN/ [Concomitant]
  5. COMPAZINE [Concomitant]
     Dosage: PRN
  6. NEXIUM [Concomitant]
     Dosage: QD
  7. ASPIRIN [Concomitant]
     Dosage: 325MG QD
  8. MULTIVIT [Concomitant]

REACTIONS (6)
  - BACK PAIN [None]
  - DRUG INEFFECTIVE [None]
  - FACE OEDEMA [None]
  - INSOMNIA [None]
  - MUSCULOSKELETAL CHEST PAIN [None]
  - SPINAL FRACTURE [None]
